FAERS Safety Report 5521586-X (Version None)
Quarter: 2007Q4

REPORT INFORMATION
  Report Type: 
  Country: None (occurrence: None)
  Receive Date: 20071120
  Receipt Date: 20071111
  Transmission Date: 20080405
  Serious: Yes (Other)
  Sender: FDA-Public Use
  Company Number: NL-JNJFOC-20071104633

PATIENT
  Sex: Male

DRUGS (8)
  1. RISPERDAL [Suspect]
     Indication: ASPERGER'S DISORDER
  2. PREDNISONE TAB [Concomitant]
     Indication: DRUG USE FOR UNKNOWN INDICATION
  3. CELLCEPT [Concomitant]
  4. UNSPECIFIED HYPERTENSION MEDICATION [Concomitant]
  5. UNSPECIFIED STOMACH MEDICATION [Concomitant]
  6. ANTI-DEPRESSANTS [Concomitant]
  7. TEMAZEPAM [Concomitant]
  8. PROGRAF [Concomitant]

REACTIONS (3)
  - AFFECT LABILITY [None]
  - BLUNTED AFFECT [None]
  - WEIGHT DECREASED [None]
